FAERS Safety Report 13876333 (Version 1)
Quarter: 2017Q3

REPORT INFORMATION
  Report Type: Report from Study
  Country: US (occurrence: US)
  Receive Date: 20170817
  Receipt Date: 20170817
  Transmission Date: 20171127
  Serious: Yes (Hospitalization, Other)
  Sender: FDA-Public Use
  Company Number: US-GILEAD-2017-0288682

PATIENT
  Age: 59 Year
  Sex: Male

DRUGS (1)
  1. AMBRISENTAN [Suspect]
     Active Substance: AMBRISENTAN
     Indication: PULMONARY ARTERIAL HYPERTENSION
     Dosage: 5 MG, QD
     Route: 065
     Dates: start: 20170330

REACTIONS (6)
  - Chronic hepatic failure [Unknown]
  - Haematemesis [Unknown]
  - Product use issue [Recovered/Resolved]
  - Localised infection [Unknown]
  - Diabetic complication [Unknown]
  - Headache [Not Recovered/Not Resolved]
